FAERS Safety Report 16814528 (Version 1)
Quarter: 2019Q3

REPORT INFORMATION
  Report Type: Spontaneous
  Country: US (occurrence: US)
  Receive Date: 20190917
  Receipt Date: 20190917
  Transmission Date: 20191005
  Serious: No
  Sender: FDA-Public Use
  Company Number: US-HTU-2019US019411

PATIENT
  Sex: Male

DRUGS (1)
  1. VALCHLOR [Suspect]
     Active Substance: MECHLORETHAMINE
     Indication: CUTANEOUS T-CELL LYMPHOMA
     Dosage: UNKNOWN
     Route: 061

REACTIONS (6)
  - Drug ineffective [Unknown]
  - Dry skin [Unknown]
  - Condition aggravated [Unknown]
  - Pain of skin [Unknown]
  - Pruritus [Unknown]
  - Skin fissures [Unknown]
